FAERS Safety Report 4511530-6 (Version None)
Quarter: 2004Q4

REPORT INFORMATION
  Report Type: 
  Country: None (occurrence: None)
  Receive Date: 20041129
  Receipt Date: 20040910
  Transmission Date: 20050328
  Serious: No
  Sender: FDA-Public Use
  Company Number: US-BRISTOL-MYERS SQUIBB COMPANY-12700381

PATIENT
  Age: 13 Year
  Sex: Male
  Weight: 64 kg

DRUGS (5)
  1. ABILIFY [Suspect]
     Indication: SCHIZOAFFECTIVE DISORDER
  2. ABILIFY [Suspect]
     Indication: ATTENTION DEFICIT/HYPERACTIVITY DISORDER
  3. STRATTERA [Concomitant]
  4. SEROQUEL [Concomitant]
  5. NEURONTIN [Concomitant]

REACTIONS (1)
  - WEIGHT DECREASED [None]
